FAERS Safety Report 5827236-7 (Version None)
Quarter: 2008Q3

REPORT INFORMATION
  Report Type: 
  Country: None (occurrence: None)
  Receive Date: 20080730
  Receipt Date: 20080718
  Transmission Date: 20090109
  Serious: Yes (Hospitalization)
  Sender: FDA-Public Use
  Company Number: FR-ROCHE-540632

PATIENT
  Sex: Male

DRUGS (10)
  1. CELLCEPT [Suspect]
     Route: 048
     Dates: start: 20071005, end: 20080417
  2. CORTANCYL [Suspect]
     Indication: DRUG USE FOR UNKNOWN INDICATION
     Route: 048
     Dates: end: 20071026
  3. PROGRAF [Suspect]
     Route: 048
  4. HYDROCORTISONE [Concomitant]
     Dosage: IN THE MORNING.
  5. NEXIUM [Concomitant]
     Dosage: 1 IN THE EVENING.
  6. MAGNESIUM CARBONATE [Concomitant]
     Dosage: DRUG NAME REPORTED: MAG2. DOSAGE: 1 MORNING AND EVENING
  7. IDEOS [Concomitant]
     Dosage: DOSAGE: 1 MORNING AND EVENING.
  8. FOLIC ACID [Concomitant]
     Dosage: DRUG NAME REPORTED: SPECIALFOLDINE. IN THE MORNING.
  9. KARDEGIC [Concomitant]
     Dosage: IN THE MORNING
     Dates: end: 20080417
  10. SOLUPRED [Concomitant]

REACTIONS (3)
  - COLITIS ULCERATIVE [None]
  - CYTOMEGALOVIRUS INFECTION [None]
  - VIRUS CULTURE POSITIVE [None]
